FAERS Safety Report 4355299-7 (Version None)
Quarter: 2004Q2

REPORT INFORMATION
  Report Type: 
  Country: None (occurrence: None)
  Receive Date: 20040505
  Receipt Date: 20040426
  Transmission Date: 20050107
  Serious: Yes (Hospitalization, Other)
  Sender: FDA-Public Use
  Company Number: SE-SHR-04-024640

PATIENT
  Age: 70 Year
  Sex: Female

DRUGS (8)
  1. SOTALOL (SOTALOL HYDROCHLORIDE)TABLET [Suspect]
     Indication: ATRIAL FIBRILLATION
     Dosage: 80 MG, 2X/DAY, ORAL
     Route: 048
     Dates: end: 20040204
  2. REMERON [Suspect]
     Dosage: 45 MG, ORAL
     Route: 048
     Dates: end: 20040204
  3. SPIRIVA [Concomitant]
  4. TROMBYL (ACETYLSALICYLIC ACID) [Concomitant]
  5. ACETYLCYSTEINE [Concomitant]
  6. OXYS (FORMOTEROL) [Concomitant]
  7. TRIOBE (PYRIDOXINE) [Concomitant]
  8. ATACAND [Concomitant]

REACTIONS (4)
  - BACK PAIN [None]
  - CONDITION AGGRAVATED [None]
  - HYPONATRAEMIA [None]
  - RALES [None]
